FAERS Safety Report 6877780-9 (Version None)
Quarter: 2010Q3

REPORT INFORMATION
  Report Type: 
  Country: None (occurrence: None)
  Receive Date: 20100727
  Receipt Date: 20091021
  Transmission Date: 20110219
  Serious: No
  Sender: FDA-Public Use
  Company Number: US-ABBOTT-09P-163-0604299-00

PATIENT
  Sex: Female
  Weight: 58.112 kg

DRUGS (2)
  1. SYNTHROID [Suspect]
     Indication: HYPOTHYROIDISM
     Route: 048
     Dates: end: 20091019
  2. SYNTHROID [Suspect]
     Route: 048
     Dates: start: 20091019

REACTIONS (7)
  - AGITATION [None]
  - BLOOD THYROID STIMULATING HORMONE DECREASED [None]
  - DIARRHOEA [None]
  - FORMICATION [None]
  - MYALGIA [None]
  - THYROID DISORDER [None]
  - TREMOR [None]
